FAERS Safety Report 6685148-3 (Version None)
Quarter: 2010Q2

REPORT INFORMATION
  Report Type: 
  Country: None (occurrence: None)
  Receive Date: 20100416
  Receipt Date: 20100406
  Transmission Date: 20101027
  Serious: Yes (Other)
  Sender: FDA-Public Use
  Company Number: US-PFIZER INC-2010043599

PATIENT
  Sex: Male
  Weight: 86.168 kg

DRUGS (1)
  1. CHANTIX [Suspect]
     Indication: SMOKING CESSATION THERAPY
     Dosage: 0.5 MG, 2X/DAY
     Route: 048
     Dates: start: 20100402, end: 20100406

REACTIONS (4)
  - AGITATION [None]
  - DISTURBANCE IN ATTENTION [None]
  - FORMICATION [None]
  - PALPITATIONS [None]
